FAERS Safety Report 23407679 (Version 1)
Quarter: 2024Q1

REPORT INFORMATION
  Report Type: Spontaneous
  Country: CN (occurrence: CN)
  Receive Date: 20240117
  Receipt Date: 20240117
  Transmission Date: 20240410
  Serious: Yes (Other)
  Sender: FDA-Public Use
  Company Number: CN-SHANGHAI JUNSHI BIOSCIENCES CO., LTD.-CN2024009021

PATIENT

DRUGS (2)
  1. TORIPALIMAB [Suspect]
     Active Substance: TORIPALIMAB
     Indication: Breast cancer
     Dosage: 240 MG, EVERY 21 DAYS
     Route: 041
     Dates: start: 20230629, end: 20231222
  2. SODIUM CHLORIDE [Concomitant]
     Active Substance: SODIUM CHLORIDE
     Indication: Medication dilution
     Dosage: 100 ML, EVERY 21 DAYS
     Route: 041
     Dates: start: 20230629, end: 20231222

REACTIONS (3)
  - Skin disorder [Recovering/Resolving]
  - Rash erythematous [Recovering/Resolving]
  - Off label use [Unknown]

NARRATIVE: CASE EVENT DATE: 20230629
